FAERS Safety Report 8078477-2 (Version None)
Quarter: 2012Q1

REPORT INFORMATION
  Report Type: 
  Country: None (occurrence: None)
  Receive Date: 20120123
  Receipt Date: 20120111
  Transmission Date: 20120608
  Serious: No
  Sender: FDA-Public Use
  Company Number: 2012-00008

PATIENT
  Age: 27 Year
  Sex: Male
  Weight: 108.8633 kg

DRUGS (1)
  1. ZICAM COLD REMEDY RAPIDMELTS CITRUS [Suspect]
     Indication: NASOPHARYNGITIS
     Dates: start: 20120106

REACTIONS (1)
  - AGEUSIA [None]
